FAERS Safety Report 6912638-8 (Version None)
Quarter: 2010Q3

REPORT INFORMATION
  Report Type: 
  Country: None (occurrence: None)
  Receive Date: 20100806
  Receipt Date: 20081028
  Transmission Date: 20110219
  Serious: No
  Sender: FDA-Public Use
  Company Number: US-PFIZER INC-2008079030

PATIENT

DRUGS (2)
  1. VFEND [Suspect]
     Route: 042
     Dates: start: 20080101
  2. VFEND [Suspect]
     Route: 048

REACTIONS (2)
  - DRUG EFFECT DECREASED [None]
  - DRUG LEVEL DECREASED [None]
